FAERS Safety Report 24262215 (Version 1)
Quarter: 2024Q3

REPORT INFORMATION
  Report Type: Spontaneous
  Country: US (occurrence: US)
  Receive Date: 20240829
  Receipt Date: 20240829
  Transmission Date: 20241016
  Serious: Yes (Other)
  Sender: RANBAXY
  Company Number: US-SUN PHARMACEUTICAL INDUSTRIES LTD-2024R1-464857

PATIENT
  Age: 25 Year
  Sex: Male

DRUGS (4)
  1. DECITABINE [Suspect]
     Active Substance: DECITABINE
     Indication: Trisomy 21
     Dosage: UNK
     Route: 065
  2. DECITABINE [Suspect]
     Active Substance: DECITABINE
     Indication: Acute myeloid leukaemia
  3. CLADRIBINE [Suspect]
     Active Substance: CLADRIBINE
     Indication: Trisomy 21
     Dosage: UNK
     Route: 065
  4. CLADRIBINE [Suspect]
     Active Substance: CLADRIBINE
     Indication: Acute myeloid leukaemia

REACTIONS (2)
  - Febrile neutropenia [Recovered/Resolved]
  - Thrombosis [Recovered/Resolved]
